FAERS Safety Report 17020190 (Version 2)
Quarter: 2019Q4

REPORT INFORMATION
  Report Type: Spontaneous
  Country: US (occurrence: US)
  Receive Date: 20191112
  Receipt Date: 20191209
  Transmission Date: 20200122
  Serious: No
  Sender: FDA-Public Use
  Company Number: US-GILEAD-2019-0437054

PATIENT
  Age: 60 Year
  Sex: Female
  Weight: 76.64 kg

DRUGS (28)
  1. CYANOCOBALAMIN. [Concomitant]
     Active Substance: CYANOCOBALAMIN
  2. DOK [Concomitant]
     Active Substance: DOCUSATE SODIUM
  3. LASIX [Concomitant]
     Active Substance: FUROSEMIDE
  4. KENALOG [Concomitant]
     Active Substance: TRIAMCINOLONE ACETONIDE
  5. BANOPHEN [Concomitant]
     Active Substance: DIPHENHYDRAMINE HYDROCHLORIDE
  6. BENADRYL [Concomitant]
     Active Substance: DIPHENHYDRAMINE HYDROCHLORIDE
  7. GLYCERIN-HYPOMELLOSE-PEG [Concomitant]
  8. METFORMIN [Concomitant]
     Active Substance: METFORMIN HYDROCHLORIDE
  9. NYSTATIN. [Concomitant]
     Active Substance: NYSTATIN
  10. SILVADENE [Concomitant]
     Active Substance: SILVER SULFADIAZINE
  11. VITAMIN E [Concomitant]
     Active Substance: .ALPHA.-TOCOPHEROL
  12. CLONAZEPAM. [Concomitant]
     Active Substance: CLONAZEPAM
  13. MONTELUKAST [Concomitant]
     Active Substance: MONTELUKAST SODIUM
  14. TAB-A-VITE [Concomitant]
  15. EPCLUSA [Suspect]
     Active Substance: SOFOSBUVIR\VELPATASVIR
     Indication: CHRONIC HEPATITIS C
     Dosage: UNK
     Route: 065
     Dates: start: 201910
  16. FLUTICASONE PROPIONATE. [Concomitant]
     Active Substance: FLUTICASONE PROPIONATE
  17. LAMOTRIGINE. [Concomitant]
     Active Substance: LAMOTRIGINE
  18. FLUTICASONE;SALMETEROL [Concomitant]
     Active Substance: FLUTICASONE PROPIONATE\SALMETEROL XINAFOATE
  19. MORPHINE [Concomitant]
     Active Substance: MORPHINE
  20. TIOTROPIUM [Concomitant]
     Active Substance: TIOTROPIUM
  21. CLONIDINE. [Concomitant]
     Active Substance: CLONIDINE
  22. D 1000 [Concomitant]
     Active Substance: CHOLECALCIFEROL
  23. FAMOTIDINE. [Concomitant]
     Active Substance: FAMOTIDINE
  24. MAGNESIUM OXIDE. [Concomitant]
     Active Substance: MAGNESIUM OXIDE
  25. POLYETHYLENE GLYCOL 3350. [Concomitant]
     Active Substance: POLYETHYLENE GLYCOL 3350
  26. PRAVACHOL [Concomitant]
     Active Substance: PRAVASTATIN SODIUM
  27. CAMPHOR-MENTHOL [Concomitant]
  28. NAPROXEN SODIUM. [Concomitant]
     Active Substance: NAPROXEN SODIUM

REACTIONS (4)
  - Asthenia [Recovered/Resolved]
  - Insomnia [Recovered/Resolved]
  - Fatigue [Recovered/Resolved]
  - Headache [Recovered/Resolved]

NARRATIVE: CASE EVENT DATE: 20191107
